FAERS Safety Report 11147741 (Version 2)
Quarter: 2016Q2

REPORT INFORMATION
  Report Type: Report from Study
  Country: CO (occurrence: CO)
  Receive Date: 20150529
  Receipt Date: 20160627
  Transmission Date: 20160815
  Serious: Yes (Other)
  Sender: FDA-Public Use
  Company Number: CO-ROCHE-1557844

PATIENT
  Sex: Female

DRUGS (1)
  1. MABTHERA [Suspect]
     Active Substance: RITUXIMAB
     Indication: RHEUMATOID ARTHRITIS
     Dosage: LAST DOSE OF RITUXIMAB: 13/MAY/2015
     Route: 042
     Dates: start: 20140922

REACTIONS (3)
  - Drug-induced liver injury [Recovering/Resolving]
  - Drug ineffective [Unknown]
  - Transaminases increased [Recovering/Resolving]
